FAERS Safety Report 8045163-4 (Version None)
Quarter: 2012Q1

REPORT INFORMATION
  Report Type: 
  Country: None (occurrence: None)
  Receive Date: 20120113
  Receipt Date: 20110913
  Transmission Date: 20120608
  Serious: Yes (Hospitalization)
  Sender: FDA-Public Use
  Company Number: US-ASTRAZENECA-2011SE55208

PATIENT
  Sex: Female

DRUGS (2)
  1. SEROQUEL XR [Suspect]
     Route: 048
  2. LITHIUM CARBONATE [Concomitant]

REACTIONS (4)
  - DRUG DOSE OMISSION [None]
  - DEPRESSION [None]
  - CONDITION AGGRAVATED [None]
  - PARANOIA [None]
